FAERS Safety Report 8814370 (Version 1)
Quarter: 2012Q4

REPORT INFORMATION
  Report Type: Spontaneous
  Country: US (occurrence: None)
  Receive Date: 20120926
  Receipt Date: 20120926
  Transmission Date: 20130627
  Serious: Yes (Other)
  Sender: FDA-Public Use
  Company Number: NSR_00666_2012

PATIENT
  Age: 3 Year

DRUGS (1)
  1. CLONIDINE [Suspect]
     Indication: PRODUCT USED FOR UNKNOWN INDICATION
     Route: 048

REACTIONS (3)
  - Product compounding quality issue [None]
  - Toxicity to various agents [None]
  - Accidental exposure to product by child [None]
